FAERS Safety Report 4649887-8 (Version None)
Quarter: 2005Q2

REPORT INFORMATION
  Report Type: 
  Country: None (occurrence: None)
  Receive Date: 20050428
  Receipt Date: 20050415
  Transmission Date: 20051028
  Serious: Yes (Other)
  Sender: FDA-Public Use
  Company Number: 2005061549

PATIENT
  Age: 34 Year
  Sex: Male

DRUGS (1)
  1. BEXTRA [Suspect]
     Indication: INTERVERTEBRAL DISC PROTRUSION
     Dosage: 80 MG (40 MG, 2 IN 1 D), ORAL
     Route: 048
     Dates: start: 20040701, end: 20040801

REACTIONS (3)
  - FACE OEDEMA [None]
  - LYMPHADENOPATHY [None]
  - SKIN OEDEMA [None]
